FAERS Safety Report 9362495 (Version 1)
Quarter: 2013Q2

REPORT INFORMATION
  Report Type: Spontaneous
  Country: US (occurrence: US)
  Receive Date: 20130622
  Receipt Date: 20130622
  Transmission Date: 20140414
  Serious: No
  Sender: FDA-Public Use
  Company Number: US-US-EMD SERONO, INC.-7041272

PATIENT
  Age: 69 Year
  Sex: Female

DRUGS (4)
  1. REBIF [Suspect]
     Indication: MULTIPLE SCLEROSIS
     Route: 058
     Dates: start: 20100823, end: 2012
  2. REBIF [Suspect]
     Route: 058
  3. LAMICTAL [Concomitant]
  4. OMEPRAZOLE [Concomitant]
     Indication: ULCER

REACTIONS (2)
  - Central nervous system lesion [Unknown]
  - Feeling abnormal [Unknown]
